FAERS Safety Report 18478163 (Version 2)
Quarter: 2024Q1

REPORT INFORMATION
  Report Type: Spontaneous
  Country: IT (occurrence: IT)
  Receive Date: 20201108
  Receipt Date: 20240123
  Transmission Date: 20240410
  Serious: Yes (Other)
  Sender: FDA-Public Use
  Company Number: IT-ABBVIE-20K-083-3611207-00

PATIENT
  Age: 45 Year
  Sex: Male

DRUGS (9)
  1. AZITHROMYCIN [Suspect]
     Active Substance: AZITHROMYCIN
     Indication: COVID-19
     Dosage: 500 MILLIGRAM
     Route: 065
     Dates: start: 202004
  2. DARUNAVIR [Suspect]
     Active Substance: DARUNAVIR
     Indication: COVID-19
     Dosage: 800 MILLIGRAM, ONCE A DAY
     Route: 065
     Dates: start: 202004
  3. ENOXAPARIN [Suspect]
     Active Substance: ENOXAPARIN
     Indication: COVID-19
     Dosage: 12000 DOSAGE FORM, ONCE A DAY
     Route: 065
     Dates: start: 202004
  4. RITONAVIR [Suspect]
     Active Substance: RITONAVIR
     Indication: COVID-19
     Dosage: 100 MILLIGRAM, ONCE A DAY
     Route: 048
     Dates: start: 202004
  5. HYDROXYCHLOROQUINE [Suspect]
     Active Substance: HYDROXYCHLOROQUINE
     Indication: COVID-19
     Dosage: 800 MILLIGRAM, ONCE A DAY
     Route: 065
     Dates: start: 202004, end: 202004
  6. HYDROXYCHLOROQUINE [Suspect]
     Active Substance: HYDROXYCHLOROQUINE
     Dosage: 400 MILLIGRAM, ONCE A DAY
     Route: 065
     Dates: start: 202004
  7. DEXAMETHASONE [Suspect]
     Active Substance: DEXAMETHASONE
     Indication: COVID-19
     Dosage: 20 MILLIGRAM, ONCE A DAY FOR 5 DAYS
     Route: 065
  8. DEXAMETHASONE [Suspect]
     Active Substance: DEXAMETHASONE
     Dosage: 10 MILLIGRAM, ONCE A DAY  FOR FOLLOWING 5 DAYS).
     Route: 065
  9. TOCILIZUMAB [Suspect]
     Active Substance: TOCILIZUMAB
     Indication: COVID-19
     Dosage: 324 MILLIGRAM ONE SHOT
     Route: 058

REACTIONS (3)
  - COVID-19 [Unknown]
  - Drug ineffective for unapproved indication [Unknown]
  - Off label use [Unknown]

NARRATIVE: CASE EVENT DATE: 20200101
